FAERS Safety Report 21479695 (Version 1)
Quarter: 2022Q4

REPORT INFORMATION
  Report Type: Report from Study
  Country: DE (occurrence: DE)
  Receive Date: 20221019
  Receipt Date: 20221019
  Transmission Date: 20230113
  Serious: Yes (Hospitalization, Other)
  Sender: FDA-Public Use
  Company Number: DE-002147023-PHHY2016DE115324

PATIENT
  Age: 12 Year
  Sex: Female
  Weight: 46.2 kg

DRUGS (50)
  1. DAUNORUBICIN HYDROCHLORIDE [Suspect]
     Active Substance: DAUNORUBICIN HYDROCHLORIDE
     Indication: Acute lymphocytic leukaemia
     Dosage: 32 MG
     Route: 042
     Dates: start: 20150828, end: 20150828
  2. DAUNORUBICIN HYDROCHLORIDE [Suspect]
     Active Substance: DAUNORUBICIN HYDROCHLORIDE
     Dosage: 32 MG
     Route: 042
     Dates: start: 20150821, end: 20150821
  3. DAUNORUBICIN HYDROCHLORIDE [Suspect]
     Active Substance: DAUNORUBICIN HYDROCHLORIDE
     Dosage: 35 MG
     Route: 042
     Dates: start: 20150416, end: 20150416
  4. DAUNORUBICIN HYDROCHLORIDE [Suspect]
     Active Substance: DAUNORUBICIN HYDROCHLORIDE
     Dosage: 41 MG, 1X/DAY
     Route: 042
     Dates: start: 20150130, end: 20150201
  5. DAUNORUBICIN HYDROCHLORIDE [Suspect]
     Active Substance: DAUNORUBICIN HYDROCHLORIDE
     Dosage: 35 MG
     Route: 042
     Dates: start: 20150423, end: 20150423
  6. DAUNORUBICIN HYDROCHLORIDE [Suspect]
     Active Substance: DAUNORUBICIN HYDROCHLORIDE
     Dosage: 35 MG
     Route: 042
     Dates: start: 20150409, end: 20150409
  7. DAUNORUBICIN HYDROCHLORIDE [Suspect]
     Active Substance: DAUNORUBICIN HYDROCHLORIDE
     Dosage: 35 MG
     Route: 042
     Dates: start: 20150430, end: 20150430
  8. DAUNORUBICIN HYDROCHLORIDE [Suspect]
     Active Substance: DAUNORUBICIN HYDROCHLORIDE
     Dosage: 32 MG
     Route: 042
     Dates: start: 20150904, end: 20150904
  9. DAUNORUBICIN HYDROCHLORIDE [Suspect]
     Active Substance: DAUNORUBICIN HYDROCHLORIDE
     Dosage: 32 MG
     Route: 042
     Dates: start: 20150814, end: 20150814
  10. METHOTREXATE SODIUM [Suspect]
     Active Substance: METHOTREXATE SODIUM
     Indication: Acute lymphocytic leukaemia
     Dosage: 10 MG, WEEKLY
     Route: 048
     Dates: start: 20151112, end: 20151210
  11. METHOTREXATE SODIUM [Suspect]
     Active Substance: METHOTREXATE SODIUM
     Dosage: 7300 MG, DAILY
     Route: 042
     Dates: start: 20150106, end: 20150107
  12. METHOTREXATE SODIUM [Suspect]
     Active Substance: METHOTREXATE SODIUM
     Dosage: 6900 MG, DAILY
     Route: 042
     Dates: start: 20051120, end: 20150128
  13. CYCLOPHOSPHAMIDE [Suspect]
     Active Substance: CYCLOPHOSPHAMIDE
     Indication: Acute lymphocytic leukaemia
     Dosage: 1490 MG, DAILY
     Route: 042
     Dates: start: 20141206, end: 20141206
  14. CYCLOPHOSPHAMIDE [Suspect]
     Active Substance: CYCLOPHOSPHAMIDE
     Dosage: 292 MG, 5 X
     Route: 042
     Dates: start: 20150107, end: 20150109
  15. CYCLOPHOSPHAMIDE [Suspect]
     Active Substance: CYCLOPHOSPHAMIDE
     Dosage: 1260 MG, 1X/DAY
     Route: 042
     Dates: start: 20150922, end: 20150922
  16. CYCLOPHOSPHAMIDE [Suspect]
     Active Substance: CYCLOPHOSPHAMIDE
     Dosage: 1390 MG, DAILY
     Route: 042
     Dates: start: 20150518, end: 20150518
  17. CYCLOPHOSPHAMIDE [Suspect]
     Active Substance: CYCLOPHOSPHAMIDE
     Dosage: 1490 MG, DAILY
     Route: 030
     Dates: start: 20141107, end: 20141107
  18. IFOSFAMIDE\MESNA [Suspect]
     Active Substance: IFOSFAMIDE\MESNA
     Indication: Acute lymphocytic leukaemia
     Dosage: 1100 MG, 5 X
     Route: 042
     Dates: start: 20150128, end: 20150130
  19. CYTARABINE [Suspect]
     Active Substance: CYTARABINE
     Indication: Acute lymphocytic leukaemia
     Dosage: 104 MG, DAILY
     Route: 042
     Dates: start: 20150520, end: 20150523
  20. CYTARABINE [Suspect]
     Active Substance: CYTARABINE
     Dosage: 2X 2910
     Route: 042
     Dates: start: 20150110, end: 20150110
  21. CYTARABINE [Suspect]
     Active Substance: CYTARABINE
     Dosage: 112 MG, DAILY
     Route: 042
     Dates: start: 20141116, end: 20141119
  22. CYTARABINE [Suspect]
     Active Substance: CYTARABINE
     Dosage: 112 MG, DAILY
     Route: 042
     Dates: start: 20141109, end: 20141112
  23. CYTARABINE [Suspect]
     Active Substance: CYTARABINE
     Dosage: 112 MG, DAILY
     Route: 042
     Dates: start: 20141201, end: 20141204
  24. CYTARABINE [Suspect]
     Active Substance: CYTARABINE
     Dosage: 1280 MG, 4X
     Route: 042
     Dates: start: 20150217, end: 20150219
  25. CYTARABINE [Suspect]
     Active Substance: CYTARABINE
     Dosage: 104 MG, QD
     Route: 042
     Dates: start: 20150928, end: 20151001
  26. CYTARABINE [Suspect]
     Active Substance: CYTARABINE
     Dosage: 104 MG, DAILY
     Route: 042
     Dates: start: 20150527, end: 20150530
  27. CYTARABINE [Suspect]
     Active Substance: CYTARABINE
     Dosage: 104 MG, DAILY
     Route: 042
     Dates: start: 20151005, end: 20151008
  28. CYTARABINE [Suspect]
     Active Substance: CYTARABINE
     Dosage: 112 MG, DAILY
     Route: 042
     Dates: start: 20141124, end: 20141127
  29. GLIVEC [Suspect]
     Active Substance: IMATINIB MESYLATE
     Indication: Acute lymphocytic leukaemia
     Dosage: 350 MG, DAILY
     Route: 048
     Dates: start: 20141229, end: 20150104
  30. GLIVEC [Suspect]
     Active Substance: IMATINIB MESYLATE
     Dosage: 300 MG, DAILY
     Route: 048
     Dates: start: 20141007, end: 20141228
  31. GLIVEC [Suspect]
     Active Substance: IMATINIB MESYLATE
     Dosage: 450 MG, DAILY
     Route: 048
     Dates: start: 20150402, end: 20150806
  32. GLIVEC [Suspect]
     Active Substance: IMATINIB MESYLATE
     Dosage: 400 MG, DAILY
     Route: 048
     Dates: start: 20150807, end: 20151027
  33. GLIVEC [Suspect]
     Active Substance: IMATINIB MESYLATE
     Dosage: 400 MG, DAILY
     Route: 048
     Dates: start: 20151109, end: 20151210
  34. GLIVEC [Suspect]
     Active Substance: IMATINIB MESYLATE
     Dosage: 450 MG, DAILY
     Route: 048
     Dates: start: 20150105, end: 20150311
  35. ETOPOSIDE [Suspect]
     Active Substance: ETOPOSIDE
     Indication: Acute lymphocytic leukaemia
     Dosage: 140 MG
     Route: 042
     Dates: start: 20150219, end: 20150221
  36. MERCAPTOPURINE [Suspect]
     Active Substance: MERCAPTOPURINE
     Indication: Acute lymphocytic leukaemia
     Dosage: 25 MG, DAILY
     Route: 048
     Dates: start: 20151112, end: 20151210
  37. PEG/L-ASPARAGINASE [Suspect]
     Active Substance: PEGASPARGASE
     Indication: Acute lymphocytic leukaemia
     Dosage: 1270 IU
     Route: 042
     Dates: start: 20150814, end: 20150814
  38. PEG/L-ASPARAGINASE [Suspect]
     Active Substance: PEGASPARGASE
     Dosage: 1380 IU
     Route: 042
     Dates: start: 20150409, end: 20150409
  39. PEG/L-ASPARAGINASE [Suspect]
     Active Substance: PEGASPARGASE
     Dosage: 1380 IU
     Route: 042
     Dates: start: 20150202, end: 20150202
  40. PEG/L-ASPARAGINASE [Suspect]
     Active Substance: PEGASPARGASE
     Dosage: 1400 IU
     Route: 042
     Dates: start: 20150222, end: 20150222
  41. VINCRISTINE [Suspect]
     Active Substance: VINCRISTINE
     Indication: Acute lymphocytic leukaemia
     Dosage: 1.9 MG
     Route: 042
     Dates: start: 20150814, end: 20150814
  42. VINCRISTINE [Suspect]
     Active Substance: VINCRISTINE
     Dosage: 1.9 MG
     Route: 042
     Dates: start: 20150904, end: 20150904
  43. VINCRISTINE [Suspect]
     Active Substance: VINCRISTINE
     Dosage: 1.9 MG
     Route: 042
     Dates: start: 20150828, end: 20150828
  44. VINCRISTINE [Suspect]
     Active Substance: VINCRISTINE
     Dosage: 2 MG
     Route: 042
     Dates: start: 20150430, end: 20150430
  45. VINCRISTINE [Suspect]
     Active Substance: VINCRISTINE
     Dosage: 2 MG
     Route: 042
     Dates: start: 20150409, end: 20150409
  46. VINCRISTINE [Suspect]
     Active Substance: VINCRISTINE
     Dosage: 2 MG
     Route: 042
     Dates: start: 20150416, end: 20150416
  47. VINCRISTINE [Suspect]
     Active Substance: VINCRISTINE
     Dosage: 1.9 MG
     Route: 042
     Dates: start: 20150821, end: 20150821
  48. VINCRISTINE [Suspect]
     Active Substance: VINCRISTINE
     Dosage: 2 MG
     Route: 042
     Dates: start: 20150423, end: 20150423
  49. ASPARAGINASE [Suspect]
     Active Substance: ASPARAGINASE
     Indication: Acute lymphocytic leukaemia
     Dosage: 36500 IU, QD
     Route: 042
     Dates: start: 20150111, end: 20150111
  50. COTRIMOXAZOLE [Concomitant]
     Active Substance: SULFAMETHOXAZOLE\TRIMETHOPRIM
     Dosage: 960 MG, THREE TIMES A WEEK
     Route: 048
     Dates: start: 20140923

REACTIONS (12)
  - Febrile neutropenia [Recovered/Resolved]
  - Febrile neutropenia [Recovered/Resolved]
  - Febrile neutropenia [Recovered/Resolved]
  - Febrile neutropenia [Recovered/Resolved]
  - Febrile neutropenia [Recovered/Resolved]
  - Febrile neutropenia [Recovered/Resolved]
  - Neutropenia [Recovered/Resolved]
  - Neutropenia [Recovered/Resolved]
  - Neutropenia [Recovered/Resolved]
  - Neutropenia [Recovered/Resolved]
  - Neutropenia [Recovered/Resolved]
  - Neutropenia [Recovered/Resolved]

NARRATIVE: CASE EVENT DATE: 20141212
